FAERS Safety Report 24799440 (Version 2)
Quarter: 2025Q1

REPORT INFORMATION
  Report Type: Report from Study
  Country: US (occurrence: US)
  Receive Date: 20250102
  Receipt Date: 20250127
  Transmission Date: 20250408
  Serious: Yes (Hospitalization, Other)
  Sender: BAYER HEALTHCARE LLC
  Company Number: US-BAYER-2024A164617

PATIENT
  Age: 74 Year
  Sex: Female
  Weight: 67.574 kg

DRUGS (14)
  1. ADEMPAS [Suspect]
     Active Substance: RIOCIGUAT
     Indication: Pulmonary arterial hypertension
     Route: 048
     Dates: start: 20240711
  2. ADEMPAS [Suspect]
     Active Substance: RIOCIGUAT
     Indication: Pulmonary arterial hypertension
     Dosage: 2 MG, TID
     Route: 048
  3. ADEMPAS [Suspect]
     Active Substance: RIOCIGUAT
     Indication: Pulmonary arterial hypertension
     Dosage: 2.5 MG, TID
     Route: 048
  4. ASPIRIN [Suspect]
     Active Substance: ASPIRIN
  5. FUROSEMIDE [Concomitant]
     Active Substance: FUROSEMIDE
  6. IBUPROFEN [Concomitant]
     Active Substance: IBUPROFEN
  7. ATORVASTATIN CALCIUM [Concomitant]
     Active Substance: ATORVASTATIN CALCIUM
  8. VALSARTAN [Concomitant]
     Active Substance: VALSARTAN
  9. TYLENOL EXTRA STRENGTH [Concomitant]
     Active Substance: ACETAMINOPHEN
  10. MAGNESIUM [Concomitant]
     Active Substance: MAGNESIUM
  11. ELIQUIS [Concomitant]
     Active Substance: APIXABAN
  12. LEVOTHYROXINE SODIUM [Concomitant]
     Active Substance: LEVOTHYROXINE SODIUM
  13. METOPROLOL SUCCINATE [Concomitant]
     Active Substance: METOPROLOL SUCCINATE
  14. VITAMIN C [Concomitant]
     Active Substance: ASCORBIC ACID

REACTIONS (11)
  - Pulmonary angioplasty [None]
  - Pulmonary angioplasty [None]
  - Post procedural haemorrhage [None]
  - Pulmonary angioplasty [None]
  - Lung disorder [None]
  - Dyspnoea [Not Recovered/Not Resolved]
  - Cough [None]
  - Dizziness [None]
  - Peripheral swelling [None]
  - Pain in extremity [None]
  - Chest discomfort [None]

NARRATIVE: CASE EVENT DATE: 20241111
